FAERS Safety Report 15299820 (Version 1)
Quarter: 2018Q3

REPORT INFORMATION
  Report Type: Spontaneous
  Country: US (occurrence: US)
  Receive Date: 20180808
  Receipt Date: 20180808
  Transmission Date: 20181010
  Serious: Yes (Other)
  Sender: FDA-Public Use
  Company Number: None

PATIENT
  Age: 66 Year
  Sex: Female
  Weight: 55.4 kg

DRUGS (9)
  1. SODIUM CHLORIDE. [Concomitant]
     Active Substance: SODIUM CHLORIDE
  2. FOSAPREPITANT [Suspect]
     Active Substance: FOSAPREPITANT
     Indication: VOMITING
     Dosage: ?          OTHER DOSE:I150 MG IN 250 MLMS;?
     Route: 042
     Dates: start: 20180726
  3. CARBOPLATIN. [Concomitant]
     Active Substance: CARBOPLATIN
  4. DIPHENHYDRAMINE. [Concomitant]
     Active Substance: DIPHENHYDRAMINE
  5. ONDANSETRON [Concomitant]
     Active Substance: ONDANSETRON
  6. ROLAPITANT [Concomitant]
     Active Substance: ROLAPITANT
  7. PACLITAXEL. [Concomitant]
     Active Substance: PACLITAXEL
  8. FAMOTIDINE. [Concomitant]
     Active Substance: FAMOTIDINE
  9. DEXAMETHASONE. [Concomitant]
     Active Substance: DEXAMETHASONE

REACTIONS (2)
  - Headache [None]
  - Chest discomfort [None]

NARRATIVE: CASE EVENT DATE: 20180726
